FAERS Safety Report 24867718 (Version 1)
Quarter: 2025Q1

REPORT INFORMATION
  Report Type: Spontaneous
  Country: US (occurrence: US)
  Receive Date: 20250121
  Receipt Date: 20250121
  Transmission Date: 20250409
  Serious: Yes (Other)
  Sender: SANOFI AVENTIS
  Company Number: US-SA-2025SA017744

PATIENT
  Age: 71 Year
  Sex: Female

DRUGS (1)
  1. DUPIXENT [Suspect]
     Active Substance: DUPILUMAB
     Indication: Product used for unknown indication
     Dosage: 300MG, QOW
     Route: 058

REACTIONS (11)
  - Gingival swelling [Unknown]
  - Condition aggravated [Unknown]
  - Gingival blister [Unknown]
  - Gingival discomfort [Unknown]
  - Gingival pruritus [Unknown]
  - Blister infected [Unknown]
  - Burning sensation [Unknown]
  - Peripheral swelling [Unknown]
  - Sleep disorder due to a general medical condition [Unknown]
  - Eating disorder [Unknown]
  - Pruritus [Unknown]
